FAERS Safety Report 17333983 (Version 1)
Quarter: 2020Q1

REPORT INFORMATION
  Report Type: Spontaneous
  Country: ES (occurrence: ES)
  Receive Date: 20200128
  Receipt Date: 20200128
  Transmission Date: 20200409
  Serious: Yes (Other)
  Sender: FDA-Public Use
  Company Number: ES-FRESENIUS KABI-FK202000869

PATIENT
  Age: 7 Month
  Sex: Male

DRUGS (1)
  1. OCTREOTIDE INJECTION (MANUFACTURER UNKNOWN) [Suspect]
     Active Substance: OCTREOTIDE
     Indication: HYPERINSULINISM
     Route: 065

REACTIONS (2)
  - Vitamin K deficiency [Recovered/Resolved]
  - Pancreatic failure [Unknown]
